FAERS Safety Report 19513276 (Version 2)
Quarter: 2021Q3

REPORT INFORMATION
  Report Type: Spontaneous
  Country: US (occurrence: US)
  Receive Date: 20210709
  Receipt Date: 20210715
  Transmission Date: 20211014
  Serious: Yes (Life-Threatening, Hospitalization, Other)
  Sender: FDA-Public Use
  Company Number: US-PFIZER INC-2021800202

PATIENT
  Age: 48 Year
  Sex: Male

DRUGS (6)
  1. HEPARIN SODIUM. [Suspect]
     Active Substance: HEPARIN SODIUM
     Dosage: 3500 IU, INCREASED (EVERY HOUR)
     Route: 042
  2. METHADONE [Concomitant]
     Active Substance: METHADONE HYDROCHLORIDE
     Indication: DRUG WITHDRAWAL SYNDROME
     Dosage: UNK
  3. METHADONE [Concomitant]
     Active Substance: METHADONE HYDROCHLORIDE
     Indication: DELIRIUM
  4. HEPARIN SODIUM. [Suspect]
     Active Substance: HEPARIN SODIUM
     Dosage: 12 IU/KG (EVERY HOUR)
     Route: 042
  5. QUETIAPINE. [Concomitant]
     Active Substance: QUETIAPINE
     Indication: DELIRIUM
     Dosage: UNK
  6. QUETIAPINE. [Concomitant]
     Active Substance: QUETIAPINE
     Indication: DRUG WITHDRAWAL SYNDROME

REACTIONS (2)
  - Heparin resistance [Unknown]
  - Haematemesis [Unknown]
